FAERS Safety Report 4974472-8 (Version None)
Quarter: 2006Q2

REPORT INFORMATION
  Report Type: 
  Country: None (occurrence: None)
  Receive Date: 20060410
  Receipt Date: 20060328
  Transmission Date: 20061013
  Serious: Yes (Other)
  Sender: FDA-Public Use
  Company Number: 2006027738

PATIENT
  Age: 60 Year
  Sex: Female

DRUGS (2)
  1. GENOTROPIN (GENOTROPIN) [Suspect]
     Indication: OFF LABEL USE
     Dosage: 0.3 MG (5.3 MG, DAILY)
     Dates: start: 20050501
  2. VITAMINS (VITAMINS) [Concomitant]

REACTIONS (2)
  - EYE HAEMORRHAGE [None]
  - EYE PAIN [None]
